FAERS Safety Report 12306304 (Version 13)
Quarter: 2021Q1

REPORT INFORMATION
  Report Type: Report from Study
  Country: IL (occurrence: IL)
  Receive Date: 20160426
  Receipt Date: 20210323
  Transmission Date: 20210419
  Serious: Yes (Hospitalization, Other)
  Sender: FDA-Public Use
  Company Number: IL-JNJFOC-20160313976

PATIENT
  Age: 46 Year
  Sex: Female
  Weight: 58 kg

DRUGS (2)
  1. SIMPONI [Suspect]
     Active Substance: GOLIMUMAB
     Route: 058
     Dates: start: 2016
  2. SIMPONI [Suspect]
     Active Substance: GOLIMUMAB
     Indication: RHEUMATOID ARTHRITIS
     Route: 058
     Dates: start: 20160210, end: 20160930

REACTIONS (16)
  - Abdominal discomfort [Not Recovered/Not Resolved]
  - Drug ineffective [Unknown]
  - Urinary tract infection [Recovered/Resolved]
  - Herpes virus infection [Recovered/Resolved]
  - Rash pruritic [Unknown]
  - Accidental exposure to product [Unknown]
  - Pharyngitis [Recovered/Resolved]
  - Mineral supplementation [Unknown]
  - Diverticulitis [Not Recovered/Not Resolved]
  - Colitis [Recovering/Resolving]
  - Rheumatoid arthritis [Not Recovered/Not Resolved]
  - Umbilical hernia [Not Recovered/Not Resolved]
  - Pain [Unknown]
  - Hypertension [Recovered/Resolved]
  - Drug delivery system malfunction [Unknown]
  - Haematoma [Unknown]

NARRATIVE: CASE EVENT DATE: 2016
